FAERS Safety Report 19216014 (Version 2)
Quarter: 2021Q3

REPORT INFORMATION
  Report Type: Spontaneous
  Country: US (occurrence: US)
  Receive Date: 20210505
  Receipt Date: 20210810
  Transmission Date: 20211014
  Serious: No
  Sender: FDA-Public Use
  Company Number: US-ORGANON-O2105USA000171

PATIENT
  Sex: Male

DRUGS (3)
  1. GOCOVRI [Suspect]
     Active Substance: AMANTADINE
     Dosage: 274 MILLIGRAM, 1X/DAY AT BED TIME (HS)
     Route: 048
     Dates: start: 2021
  2. SINEMET [Suspect]
     Active Substance: CARBIDOPA\LEVODOPA
     Dosage: UNK, REPORTED AS CAPSULES
     Route: 048
     Dates: start: 2021
  3. GOCOVRI [Suspect]
     Active Substance: AMANTADINE
     Indication: DYSKINESIA
     Dosage: 137 MILLIGRAM, 1X/DAY AT BED TIME (HS)
     Route: 048
     Dates: start: 20210401, end: 2021

REACTIONS (3)
  - Nightmare [Unknown]
  - Sleep terror [Unknown]
  - Fear [Unknown]

NARRATIVE: CASE EVENT DATE: 2021
